FAERS Safety Report 25549403 (Version 1)
Quarter: 2025Q3

REPORT INFORMATION
  Report Type: Spontaneous
  Country: US (occurrence: US)
  Receive Date: 20250714
  Receipt Date: 20250714
  Transmission Date: 20251021
  Serious: No
  Sender: AGIOS PHARMACEUTICALS
  Company Number: US-AGIOS-2506US04341

PATIENT

DRUGS (1)
  1. PYRUKYND [Suspect]
     Active Substance: MITAPIVAT
     Indication: Thalassaemia
     Route: 065

REACTIONS (2)
  - Drug ineffective for unapproved indication [Unknown]
  - Off label use [Unknown]
